FAERS Safety Report 25641745 (Version 1)
Quarter: 2025Q3

REPORT INFORMATION
  Report Type: Spontaneous
  Country: US (occurrence: US)
  Receive Date: 20250804
  Receipt Date: 20250804
  Transmission Date: 20251020
  Serious: No
  Sender: SERVIER
  Company Number: US-SERVIER-S25007891

PATIENT

DRUGS (3)
  1. VORANIGO [Suspect]
     Active Substance: VORASIDENIB
     Indication: Brain neoplasm
     Dosage: 40 MG, QD
     Route: 048
  2. VORANIGO [Suspect]
     Active Substance: VORASIDENIB
     Route: 048
  3. VORANIGO [Suspect]
     Active Substance: VORASIDENIB
     Dosage: 40 MG, QD
     Route: 048

REACTIONS (1)
  - Liver function test increased [Recovered/Resolved]
